FAERS Safety Report 7809888-5 (Version None)
Quarter: 2011Q4

REPORT INFORMATION
  Report Type: 
  Country: None (occurrence: None)
  Receive Date: 20111012
  Receipt Date: 20110930
  Transmission Date: 20120403
  Serious: Yes (Other)
  Sender: FDA-Public Use
  Company Number: PHHY2011DK86782

PATIENT
  Sex: Female
  Weight: 92 kg

DRUGS (2)
  1. SIMVASTATIN [Suspect]
     Indication: HYPERCHOLESTEROLAEMIA
     Dosage: 20 MG, QD
     Route: 048
     Dates: start: 20100201, end: 20110201
  2. CITALOPRAM HYDROBROMIDE [Concomitant]
     Route: 048
     Dates: start: 20100101, end: 20110601

REACTIONS (5)
  - MYALGIA [None]
  - RESTLESSNESS [None]
  - ASTHENIA [None]
  - CONCOMITANT DISEASE AGGRAVATED [None]
  - POST POLIO SYNDROME [None]
